FAERS Safety Report 18379170 (Version 6)
Quarter: 2025Q2

REPORT INFORMATION
  Report Type: Spontaneous
  Country: US (occurrence: US)
  Receive Date: 20201013
  Receipt Date: 20250418
  Transmission Date: 20250717
  Serious: Yes (Other)
  Sender: AMGEN
  Company Number: US-AMGEN-USASP2020162487

PATIENT
  Age: 57 Year
  Sex: Female

DRUGS (31)
  1. OTEZLA [Suspect]
     Active Substance: APREMILAST
     Indication: Psoriasis
     Dosage: 30 MILLIGRAM, BID
     Route: 048
     Dates: start: 20181001
  2. OTEZLA [Suspect]
     Active Substance: APREMILAST
     Indication: Psoriatic arthropathy
  3. NAPROXEN [Concomitant]
     Active Substance: NAPROXEN
  4. PREMARIN [Concomitant]
     Active Substance: ESTROGENS, CONJUGATED
  5. BETAMETHASONE DIPROPIONATE [Concomitant]
     Active Substance: BETAMETHASONE DIPROPIONATE
  6. Bupron xl [Concomitant]
  7. CALCITONIN SALMON [Concomitant]
     Active Substance: CALCITONIN SALMON
  8. CELECOXIB [Concomitant]
     Active Substance: CELECOXIB
  9. CLOBETASOL PROPIONATE [Concomitant]
     Active Substance: CLOBETASOL PROPIONATE
  10. DARIFENACIN [Concomitant]
     Active Substance: DARIFENACIN
  11. EMGALITY [Concomitant]
     Active Substance: GALCANEZUMAB-GNLM
  12. ACETAMINOPHEN\HYDROCODONE [Concomitant]
     Active Substance: ACETAMINOPHEN\HYDROCODONE
  13. IRBESARTAN [Concomitant]
     Active Substance: IRBESARTAN
  14. LORAZEPAM [Concomitant]
     Active Substance: LORAZEPAM
     Route: 065
  15. METOPROLOL SUCCINATE [Concomitant]
     Active Substance: METOPROLOL SUCCINATE
  16. NAPROXEN [Concomitant]
     Active Substance: NAPROXEN
  17. OMEPRAZOLE [Concomitant]
     Active Substance: OMEPRAZOLE
  18. PRIMIDONE [Concomitant]
     Active Substance: PRIMIDONE
  19. SULFASALAZINE [Concomitant]
     Active Substance: SULFASALAZINE
  20. TREMFYA [Concomitant]
     Active Substance: GUSELKUMAB
  21. HYDROCHLOROTHIAZIDE\VALSARTAN [Concomitant]
     Active Substance: HYDROCHLOROTHIAZIDE\VALSARTAN
  22. VALSARTAN [Concomitant]
     Active Substance: VALSARTAN
  23. VITAMIN D [Concomitant]
     Active Substance: VITAMIN D NOS
  24. ZOLMITRIPTAN [Concomitant]
     Active Substance: ZOLMITRIPTAN
  25. AMLODIPINE [Concomitant]
     Active Substance: AMLODIPINE BESYLATE
  26. Betameth dipropionate [Concomitant]
  27. CYANOCOBALAMIN [Concomitant]
     Active Substance: CYANOCOBALAMIN
  28. FLUOCINONIDE [Concomitant]
     Active Substance: FLUOCINONIDE
  29. GABAPENTIN [Concomitant]
     Active Substance: GABAPENTIN
  30. ONDANSETRON [Concomitant]
     Active Substance: ONDANSETRON
  31. VENTOLIN [Concomitant]
     Active Substance: ALBUTEROL SULFATE

REACTIONS (9)
  - Psoriatic arthropathy [Unknown]
  - Pneumonia [Unknown]
  - Pain in extremity [Not Recovered/Not Resolved]
  - Product administration interrupted [Not Recovered/Not Resolved]
  - Psoriasis [Not Recovered/Not Resolved]
  - Therapy non-responder [Unknown]
  - Headache [Not Recovered/Not Resolved]
  - Nausea [Not Recovered/Not Resolved]
  - Vomiting [Not Recovered/Not Resolved]

NARRATIVE: CASE EVENT DATE: 20211001
